FAERS Safety Report 20541828 (Version 5)
Quarter: 2022Q4

REPORT INFORMATION
  Report Type: Report from Study
  Country: DO (occurrence: DO)
  Receive Date: 20220302
  Receipt Date: 20221028
  Transmission Date: 20230112
  Serious: Yes (Hospitalization, Other)
  Sender: FDA-Public Use
  Company Number: DO-NOVARTISPH-NVSC2021DO113337

PATIENT
  Sex: Female

DRUGS (3)
  1. KISQALI [Suspect]
     Active Substance: RIBOCICLIB
     Indication: Breast cancer
     Dosage: 600 MG, QD
     Route: 048
     Dates: start: 202101
  2. KISQALI [Suspect]
     Active Substance: RIBOCICLIB
     Dosage: 600 MG, QD
     Route: 048
     Dates: start: 20210302
  3. KISQALI [Suspect]
     Active Substance: RIBOCICLIB
     Dosage: 600 MG, QD
     Route: 048
     Dates: start: 20210402

REACTIONS (24)
  - Renal failure [Unknown]
  - Urinary tract inflammation [Unknown]
  - Anaemia [Unknown]
  - Neutropenia [Unknown]
  - Diarrhoea [Unknown]
  - Metastases to bone [Unknown]
  - Metastases to liver [Unknown]
  - Metastases to breast [Unknown]
  - COVID-19 [Unknown]
  - Malaise [Unknown]
  - Aphonia [Unknown]
  - Contusion [Unknown]
  - Decreased immune responsiveness [Unknown]
  - Influenza [Unknown]
  - Weight decreased [Unknown]
  - Sinusitis [Unknown]
  - Red blood cell count decreased [Unknown]
  - Platelet count decreased [Recovering/Resolving]
  - Abdominal pain upper [Unknown]
  - Vomiting [Unknown]
  - White blood cell count decreased [Unknown]
  - Feeling abnormal [Unknown]
  - Product dose omission in error [Unknown]
  - Product availability issue [Unknown]
